FAERS Safety Report 6273300-0 (Version None)
Quarter: 2009Q3

REPORT INFORMATION
  Report Type: 
  Country: None (occurrence: None)
  Receive Date: 20090720
  Receipt Date: 20090707
  Transmission Date: 20100115
  Serious: Yes (Hospitalization)
  Sender: FDA-Public Use
  Company Number: AU-ELI_LILLY_AND_COMPANY-AU200907001012

PATIENT
  Age: 77 Year
  Sex: Male

DRUGS (5)
  1. ALIMTA [Suspect]
     Indication: MESOTHELIOMA
     Dosage: 950 MG, UNKNOWN
     Route: 065
     Dates: start: 20090630
  2. CISPLATIN [Concomitant]
     Indication: MESOTHELIOMA
     Dosage: 114 MG, UNKNOWN
     Route: 065
  3. VITAMIN B-12 [Concomitant]
     Indication: SUPPLEMENTATION THERAPY
     Dosage: UNK, UNKNOWN
     Route: 065
  4. FOLIC ACID [Concomitant]
     Indication: SUPPLEMENTATION THERAPY
     Dosage: UNK, UNKNOWN
     Route: 065
  5. DEXAMETHASONE [Concomitant]
     Indication: SUPPLEMENTATION THERAPY
     Dosage: UNK, UNKNOWN
     Route: 065

REACTIONS (2)
  - CEREBROVASCULAR ACCIDENT [None]
  - DYSARTHRIA [None]
